FAERS Safety Report 15706917 (Version 1)
Quarter: 2018Q4

REPORT INFORMATION
  Report Type: Spontaneous
  Country: US (occurrence: US)
  Receive Date: 20181210
  Receipt Date: 20181210
  Transmission Date: 20190205
  Serious: Yes (Other)
  Sender: FDA-Public Use
  Company Number: US-GLAXOSMITHKLINE-US2018221124

PATIENT
  Sex: Female

DRUGS (1)
  1. LAMOTRIGINE. [Suspect]
     Active Substance: LAMOTRIGINE
     Indication: SEIZURE
     Dosage: 300 MG, QD
     Dates: start: 2011

REACTIONS (6)
  - Drug ineffective [Unknown]
  - Dysgraphia [Unknown]
  - Seizure [Unknown]
  - Confusional state [Unknown]
  - Cerebrovascular accident [Unknown]
  - Memory impairment [Unknown]
